FAERS Safety Report 7626493-4 (Version None)
Quarter: 2011Q3

REPORT INFORMATION
  Report Type: 
  Country: None (occurrence: None)
  Receive Date: 20110721
  Receipt Date: 20110708
  Transmission Date: 20111222
  Serious: Yes (Other)
  Sender: FDA-Public Use
  Company Number: DE-NAPPMUNDI-DEU-2011-0007486

PATIENT
  Sex: Female

DRUGS (13)
  1. MIRTAZAPINE [Concomitant]
     Indication: ANXIETY DISORDER
     Dosage: 30 MG, NOCTE
  2. ATACAND [Concomitant]
     Dosage: 16 MG, SEE TEXT
  3. SELECTIVE SEROTONIN REUPTAKE INHIBITORS [Concomitant]
     Indication: HYPOTHYROIDISM
  4. LEVOTHYROXINE SODIUM [Concomitant]
     Dosage: 100 MG/ML, SEE TEXT
  5. TILIDIN COMP [Concomitant]
     Dosage: UNK, BID
  6. MIRTAZAPINE [Concomitant]
     Dosage: 15 MG, NOCTE
  7. 5-HTP [Concomitant]
     Indication: HYPOTHYROIDISM
  8. OXYCODONE HCL [Suspect]
     Indication: PAIN
     Dosage: UNK, SEE TEXT
     Route: 048
  9. DOLOMIT [Concomitant]
     Dosage: 1 TSP, TID
  10. KATADOLON S [Concomitant]
     Dosage: 1 TABLET, NOCTE
     Route: 048
  11. NEUPRO [Suspect]
     Indication: RESTLESS LEGS SYNDROME
     Dosage: 2 MG, SEE TEXT
     Route: 062
  12. LORAZEPAM [Concomitant]
     Indication: ANXIETY DISORDER
     Dosage: 1 MG, SEE TEXT
  13. NOVAMINSULFON [Concomitant]
     Dosage: 30 DROP, TID
     Route: 048

REACTIONS (4)
  - NIGHTMARE [None]
  - NAUSEA [None]
  - SEROTONIN SYNDROME [None]
  - BLOOD PRESSURE INCREASED [None]
